FAERS Safety Report 7960200-0 (Version None)
Quarter: 2011Q4

REPORT INFORMATION
  Report Type: 
  Country: None (occurrence: None)
  Receive Date: 20111206
  Receipt Date: 20111201
  Transmission Date: 20120403
  Serious: Yes (Death)
  Sender: FDA-Public Use
  Company Number: PHEH2011US010612

PATIENT
  Sex: Male

DRUGS (1)
  1. ZOMETA [Suspect]
     Dosage: 4 MG/5 ML

REACTIONS (3)
  - NEOPLASM MALIGNANT [None]
  - CARDIOPULMONARY FAILURE [None]
  - NEOPLASM PROGRESSION [None]
